FAERS Safety Report 19185920 (Version 1)
Quarter: 2021Q2

REPORT INFORMATION
  Report Type: Spontaneous
  Country: US (occurrence: US)
  Receive Date: 20210427
  Receipt Date: 20210427
  Transmission Date: 20210717
  Serious: No
  Sender: FDA-Public Use
  Company Number: US-SA-2021SA134412

PATIENT
  Sex: Male

DRUGS (2)
  1. DUPIXENT [Suspect]
     Active Substance: DUPILUMAB
     Indication: DERMATITIS ATOPIC
     Dosage: 300 MG/2ML
     Route: 058
     Dates: start: 20181227
  2. DUPIXENT [Suspect]
     Active Substance: DUPILUMAB
     Dosage: UNK MG

REACTIONS (3)
  - Dermatitis atopic [Unknown]
  - Discomfort [Unknown]
  - Sleep disorder [Unknown]
